FAERS Safety Report 24458602 (Version 1)
Quarter: 2024Q4

REPORT INFORMATION
  Report Type: Report from Study
  Country: US (occurrence: US)
  Receive Date: 20241018
  Receipt Date: 20241018
  Transmission Date: 20250115
  Serious: No
  Sender: ACADIA PHARMACEUTICALS
  Company Number: US-ACADIA PHARMACEUTICALS INC.-ACA-2024-TRF-005860

PATIENT
  Sex: Female

DRUGS (1)
  1. DAYBUE [Suspect]
     Active Substance: TROFINETIDE
     Dosage: TITRATING UP SLOWLY
     Route: 065
     Dates: start: 202407

REACTIONS (2)
  - Developmental regression [Unknown]
  - Underdose [Unknown]

NARRATIVE: CASE EVENT DATE: 20240701
